FAERS Safety Report 12432199 (Version 1)
Quarter: 2016Q2

REPORT INFORMATION
  Report Type: Spontaneous
  Country: US (occurrence: None)
  Receive Date: 20160602
  Receipt Date: 20160602
  Transmission Date: 20160815
  Serious: No
  Sender: FDA-Public Use
  Company Number: None

PATIENT
  Sex: Female

DRUGS (4)
  1. GLIPIZIDE. [Suspect]
     Active Substance: GLIPIZIDE
  2. METFORMIN [Suspect]
     Active Substance: METFORMIN HYDROCHLORIDE
  3. INVOKANA [Suspect]
     Active Substance: CANAGLIFLOZIN
  4. NETTLE [Suspect]
     Active Substance: URTICA DIOICA POLLEN

REACTIONS (6)
  - Pain in extremity [None]
  - Eye swelling [None]
  - Renal impairment [None]
  - Blood glucose increased [None]
  - Peripheral swelling [None]
  - Weight decreased [None]
